FAERS Safety Report 5801091-3 (Version None)
Quarter: 2008Q3

REPORT INFORMATION
  Report Type: 
  Country: None (occurrence: None)
  Receive Date: 20080707
  Receipt Date: 20080630
  Transmission Date: 20090109
  Serious: Yes (Hospitalization, Disabling, Other)
  Sender: FDA-Public Use
  Company Number: FR-BRISTOL-MYERS SQUIBB COMPANY-14247340

PATIENT
  Age: 29 Year
  Sex: Male
  Weight: 52 kg

DRUGS (5)
  1. AMIKLIN INJ [Suspect]
     Dosage: ALSO ROUTE TAKEN AS INTRAMUSCULAR.
     Route: 042
     Dates: start: 20071111
  2. ZYVOXID [Suspect]
     Dosage: DOSE WAS DECREASED TO 600 MG/D ON 21-MAR-2008.
     Dates: start: 20071111, end: 20080401
  3. CYCLOSERINE [Suspect]
     Dates: start: 20071120, end: 20080502
  4. IZILOX [Suspect]
     Dates: start: 20071111
  5. PARA AMINOSALICYLIC ACID [Suspect]
     Dosage: PARA-AMINOSALICYLIC ACID.
     Dates: start: 20071111

REACTIONS (3)
  - DYSAESTHESIA [None]
  - PAIN IN EXTREMITY [None]
  - POLYNEUROPATHY [None]
